FAERS Safety Report 7704666-X (Version None)
Quarter: 2011Q3

REPORT INFORMATION
  Report Type: 
  Country: None (occurrence: None)
  Receive Date: 20110823
  Receipt Date: 20110816
  Transmission Date: 20111222
  Serious: Yes (Hospitalization)
  Sender: FDA-Public Use
  Company Number: CHPA2011US11018

PATIENT
  Sex: Female

DRUGS (6)
  1. EXCEDRIN (MIGRAINE) [Suspect]
     Indication: SCIATICA
     Dosage: 2 DF, QD
     Route: 048
     Dates: end: 20101201
  2. EXCEDRIN (MIGRAINE) [Suspect]
     Dosage: 2 DF, UNK
     Route: 048
  3. EXCEDRIN (MIGRAINE) [Suspect]
     Indication: NECK PAIN
     Dosage: 2 DF, UNK
     Route: 048
  4. EXCEDRIN (MIGRAINE) [Suspect]
     Dosage: 2 DF, QD
     Route: 048
     Dates: end: 20101201
  5. EXCEDRIN (MIGRAINE) [Suspect]
     Indication: MUSCULOSKELETAL PAIN
  6. EXCEDRIN (MIGRAINE) [Suspect]

REACTIONS (12)
  - VOMITING [None]
  - PNEUMONIA [None]
  - THROAT IRRITATION [None]
  - MUSCULOSKELETAL PAIN [None]
  - DYSGEUSIA [None]
  - NAUSEA [None]
  - NECK PAIN [None]
  - DRY MOUTH [None]
  - INCORRECT DRUG ADMINISTRATION DURATION [None]
  - ABDOMINAL DISCOMFORT [None]
  - MALAISE [None]
  - OFF LABEL USE [None]
